FAERS Safety Report 17746488 (Version 6)
Quarter: 2020Q2

REPORT INFORMATION
  Report Type: Spontaneous
  Country: US (occurrence: US)
  Receive Date: 20200505
  Receipt Date: 20200511
  Transmission Date: 20200714
  Serious: Yes (Life-Threatening)
  Sender: FDA-Public Use
  Company Number: US-AGG-04-2020-2262

PATIENT
  Age: 68 Year
  Sex: Female

DRUGS (12)
  1. CLOPIDOGREL [Concomitant]
     Active Substance: CLOPIDOGREL BISULFATE
     Dosage: FOR 6 MONTHS AFTER DEVICE IMPLANTATION
  2. BIVALIRUDIN. [Concomitant]
     Active Substance: BIVALIRUDIN
     Indication: ANTICOAGULANT THERAPY
     Dosage: DURING PLANNED PERCUTANEOUS CLOSURE OF PFO (PATEN FORAMEN OVALE)
  3. WARFARIN [Concomitant]
     Active Substance: WARFARIN
     Indication: ANTIPLATELET THERAPY
     Dosage: AFTER DETECTION OF THROMBUS IN SUPERERIOR MESENTERIC ATERY
  4. TICAGRELOR. [Concomitant]
     Active Substance: TICAGRELOR
     Indication: ANTIPLATELET THERAPY
     Dosage: PATIENT WAS LOADED WITH TICAGRELOR AND CANGRELOR, GIVEN TIROFIBAN IV
  5. HEPARIN [Concomitant]
     Active Substance: HEPARIN SODIUM
     Indication: ANTICOAGULANT THERAPY
     Route: 042
  6. ATORVASTATIN [Concomitant]
     Active Substance: ATORVASTATIN
     Indication: CEREBROVASCULAR ACCIDENT PROPHYLAXIS
     Dosage: DURING ONSET OF CEREBROVASCULAR SYMPTOMS
     Route: 048
  7. CLOPIDOGREL [Concomitant]
     Active Substance: CLOPIDOGREL BISULFATE
     Indication: ANTIPLATELET THERAPY
     Dosage: AFTER DETECTION OF THROMBUS IN SUPERERIOR MESENTERIC ATERY
  8. ARGATROBAN. [Concomitant]
     Active Substance: ARGATROBAN
     Indication: ANTICOAGULANT THERAPY
     Dosage: TAKEN DUE TO CONCERNS FOR HEPARIN INDUCED THROMBOCYTOPENIA
  9. AGGRASTAT [Suspect]
     Active Substance: TIROFIBAN HYDROCHLORIDE
     Indication: ANTIPLATELET THERAPY
     Route: 041
  10. CANGRELOR [Concomitant]
     Active Substance: CANGRELOR
     Indication: ANTIPLATELET THERAPY
     Dosage: PATIENT WAS LOADED WITH TICAGRELOR AND CANGRELOR, GIVEN TIROFIBAN IV
  11. WARFARIN [Concomitant]
     Active Substance: WARFARIN
     Dosage: FOR 6 MONTHS AFTER DEVICE IMPLANTATION
  12. ASPIRIN. [Concomitant]
     Active Substance: ASPIRIN
     Indication: ANTICOAGULANT THERAPY
     Dosage: STARTED DURING ONSET OF CEREBROVASCULAR SYMPTOMS
     Route: 048

REACTIONS (1)
  - Thrombosis in device [Recovered/Resolved]
